FAERS Safety Report 10754536 (Version 1)
Quarter: 2015Q1

REPORT INFORMATION
  Report Type: Spontaneous
  Country: US (occurrence: US)
  Receive Date: 20150202
  Receipt Date: 20150202
  Transmission Date: 20150721
  Serious: No
  Sender: FDA-Public Use
  Company Number: US-SHIRE-US201500747

PATIENT
  Age: 83 Year
  Sex: Female
  Weight: 63.49 kg

DRUGS (9)
  1. IRBESARTAN. [Concomitant]
     Active Substance: IRBESARTAN
     Indication: HYPERTENSION
     Dosage: 300 MG, 1X/DAY:QD
     Route: 048
     Dates: start: 2012
  2. AMLODINE                           /00972402/ [Concomitant]
     Indication: HYPERTENSION
     Dosage: 5 MG, 1X/DAY:QD
     Route: 048
     Dates: start: 2012
  3. IBANDRONATE SODIUM. [Concomitant]
     Active Substance: IBANDRONATE SODIUM
     Indication: OSTEOPOROSIS
     Dosage: 150 MG, OTHER (MONTHY)
     Route: 048
  4. CHLORDIAZEPOXIDE W/CLIDINIUM [Concomitant]
     Indication: CROHN^S DISEASE
     Dosage: UNK UNK, 2X/DAY:BID
     Route: 048
  5. CALCIUM/VITAMIN D                  /01204201/ [Concomitant]
     Indication: OSTEOPOROSIS
     Dosage: 1200MG/1000IU, 2X/DAY:BID
     Route: 048
  6. FOLIC ACID. [Concomitant]
     Active Substance: FOLIC ACID
     Indication: CROHN^S DISEASE
     Dosage: 1 MG, 1X/DAY:QD
     Route: 048
  7. TINOLOL [Concomitant]
     Indication: GLAUCOMA
     Dosage: 1 GTT (IN EACH EYE), 1X/DAY:QD
     Route: 047
  8. ATORVASTATIN [Concomitant]
     Active Substance: ATORVASTATIN
     Indication: BLOOD CHOLESTEROL
     Dosage: 20 MG, 1X/DAY:QD
     Route: 048
     Dates: start: 2009
  9. LIALDA [Suspect]
     Active Substance: MESALAMINE
     Indication: CROHN^S DISEASE
     Dosage: 1.2 G, 4X/DAY:QID
     Route: 048
     Dates: start: 201405

REACTIONS (3)
  - Inappropriate schedule of drug administration [Not Recovered/Not Resolved]
  - Product use issue [Not Recovered/Not Resolved]
  - No adverse event [Not Recovered/Not Resolved]

NARRATIVE: CASE EVENT DATE: 201405
